FAERS Safety Report 9677354 (Version 1)
Quarter: 2013Q4

REPORT INFORMATION
  Report Type: Spontaneous
  Country: BR (occurrence: BR)
  Receive Date: 20131108
  Receipt Date: 20131108
  Transmission Date: 20140711
  Serious: Yes (Other)
  Sender: FDA-Public Use
  Company Number: BR-SA-2013SA112471

PATIENT
  Sex: Female
  Weight: 85 kg

DRUGS (8)
  1. LANTUS [Suspect]
     Indication: TYPE 1 DIABETES MELLITUS
     Route: 058
  2. DEVICE NOS [Concomitant]
  3. AAS INFANTIL [Concomitant]
     Indication: BLOOD DISORDER
     Route: 048
  4. CENTRUM [Concomitant]
     Indication: GASTRIC OPERATION
     Route: 048
  5. CONCOR [Concomitant]
     Indication: BLOOD PRESSURE
     Route: 048
  6. SIMVASTATIN [Concomitant]
     Indication: BLOOD PRESSURE
     Route: 048
  7. CRESTOR [Concomitant]
     Indication: BODY FAT DISORDER
     Route: 048
  8. NOVORAPID [Concomitant]
     Indication: TYPE 1 DIABETES MELLITUS
     Dosage: DOSE: 8 IU IN MORNING, 12 IU AT LUNCH AND 8 IU AT DINNER
     Route: 058

REACTIONS (8)
  - Ligament rupture [Unknown]
  - Back pain [Unknown]
  - Pain in extremity [Unknown]
  - Carpal tunnel syndrome [Unknown]
  - Hypoaesthesia [Unknown]
  - Muscle spasms [Unknown]
  - Pain [Unknown]
  - Fat tissue increased [Unknown]
